FAERS Safety Report 4404963-X (Version None)
Quarter: 2004Q2

REPORT INFORMATION
  Report Type: 
  Country: None (occurrence: None)
  Receive Date: 20040618
  Receipt Date: 20040315
  Transmission Date: 20050107
  Serious: No
  Sender: FDA-Public Use
  Company Number: US-JNJFOC-20040303973

PATIENT
  Age: 31 Year
  Sex: Female
  Weight: 52.1637 kg

DRUGS (2)
  1. ORTHO EVRA [Suspect]
     Indication: CONTRACEPTION
     Dosage: 1 DOSE(S) 3 IN 4 WEEKS TRANSDERMAL
     Route: 062
     Dates: start: 20021001
  2. HYDROQUINONE (CREAM) (HYDROQUINONE) [Concomitant]

REACTIONS (1)
  - APPLICATION SITE REACTION [None]
